FAERS Safety Report 21469645 (Version 1)
Quarter: 2022Q4

REPORT INFORMATION
  Report Type: Spontaneous
  Country: US (occurrence: US)
  Receive Date: 20221018
  Receipt Date: 20221018
  Transmission Date: 20230113
  Serious: No
  Sender: FDA-Public Use
  Company Number: US-ADAMAS PHARMA, LLC-2021ADA02726

PATIENT
  Age: 72 Year
  Sex: Male
  Weight: 76.19 kg

DRUGS (10)
  1. GOCOVRI [Suspect]
     Active Substance: AMANTADINE
     Indication: Dyskinesia
     Dosage: 137 MG, 1X/DAY, AT BEDTIME
     Route: 048
     Dates: start: 20211008, end: 20211014
  2. GOCOVRI [Suspect]
     Active Substance: AMANTADINE
     Dosage: 274 MG, 1X/DAY, AT BEDTIME
     Route: 048
     Dates: start: 20211015, end: 20211104
  3. GOCOVRI [Suspect]
     Active Substance: AMANTADINE
     Dosage: 137 MG, 1X/DAY, AT BEDTIME
     Route: 048
     Dates: start: 20211105
  4. GOCOVRI [Suspect]
     Active Substance: AMANTADINE
     Dosage: 137 MG, 1X/DAY AT BEDTIME ALONG WITH 68.5 MG FOR A TOTAL DAILY DOSE OF 205.5 MG
     Route: 048
  5. GOCOVRI [Suspect]
     Active Substance: AMANTADINE
     Indication: Dyskinesia
     Dosage: 68.5 MG, 1X/DAY AT BEDTIME ALONG WITH 137 MG FOR A TOTAL DAILY DOSE OF 205.5 MG
     Route: 048
  6. AMANTADINE [Concomitant]
     Active Substance: AMANTADINE
     Dosage: 100 MG, 1X/DAY IN THE MORNING
     Dates: end: 20211014
  7. CARBIDOPA/LEVODOPA EXTENDED-RELEASE [Concomitant]
  8. CARBIDOPA/LEVODOPA IMMEDIATE-RELEASE [Concomitant]
  9. ENTACAPONE [Concomitant]
     Active Substance: ENTACAPONE
  10. ROPINIROLE [Concomitant]
     Active Substance: ROPINIROLE

REACTIONS (3)
  - Pain [Not Recovered/Not Resolved]
  - Discomfort [Not Recovered/Not Resolved]
  - Constipation [Unknown]

NARRATIVE: CASE EVENT DATE: 20211010
